FAERS Safety Report 14238182 (Version 3)
Quarter: 2017Q4

REPORT INFORMATION
  Report Type: Report from Study
  Country: None (occurrence: BE)
  Receive Date: 20171130
  Receipt Date: 20171206
  Transmission Date: 20180321
  Serious: Yes (Death, Hospitalization, Other)
  Sender: FDA-Public Use
  Company Number: BE-ABBVIE-15P-013-1408445-00

PATIENT
  Age: 69 Year
  Sex: Female

DRUGS (20)
  1. DUODOPA [Suspect]
     Active Substance: CARBIDOPA\LEVODOPA
     Indication: PARKINSON^S DISEASE
     Dosage: AM:3ML;CD:0.9ML/HR DURING 16H; ED:0.3ML; ND:0.9/HR DURING 8
     Route: 050
     Dates: start: 20131125, end: 20131129
  2. DUODOPA [Suspect]
     Active Substance: CARBIDOPA\LEVODOPA
     Dosage: AM= 0ML; CD=2.7ML/HR DURING 16HRS; ED=1.2ML; ND=2.7ML/HR DURING 8 HRS
     Route: 050
     Dates: start: 20160210, end: 20160401
  3. DUODOPA [Suspect]
     Active Substance: CARBIDOPA\LEVODOPA
     Dosage: AM= 0 ML; CD= 2.7 ML/H DURING 16 HRS; ND= 2.7 ML DURING 8 HRS;?ED= 1.2 ML
     Route: 050
     Dates: start: 20170321, end: 20171030
  4. DUODOPA [Suspect]
     Active Substance: CARBIDOPA\LEVODOPA
     Dosage: MD=2ML CD=2.4ML/HR DURING 16HRS EDA=1.2ML ND=2.4ML/HR DURING 8HRS
     Route: 050
     Dates: start: 20171030, end: 20171110
  5. DUODOPA [Suspect]
     Active Substance: CARBIDOPA\LEVODOPA
     Dosage: AM: 2ML; CD: 2.1ML/H FOR 16 HRS; ND: 1.2ML/H FOR 8HRS; ED: 1.2ML
     Route: 050
     Dates: start: 20171110
  6. STALEVO 100 [Concomitant]
     Indication: PRODUCT USED FOR UNKNOWN INDICATION
     Dosage: FORM STRENGTH: 100MG/25MG/200MG, EMERGENCY MEDICATION : 2 TIMES A DAY
  7. GABAPENTIN. [Concomitant]
     Active Substance: GABAPENTIN
     Indication: PRODUCT USED FOR UNKNOWN INDICATION
  8. CORUNO [Concomitant]
     Active Substance: MOLSIDOMINE
     Indication: PRODUCT USED FOR UNKNOWN INDICATION
  9. DUODOPA [Suspect]
     Active Substance: CARBIDOPA\LEVODOPA
     Dosage: AM:3ML;CD:2.5ML/HR DURING 16H; ED:1.2ML; ND=2.5ML/HR DURING 8H
     Route: 050
     Dates: start: 20150305, end: 20150813
  10. DUODOPA [Suspect]
     Active Substance: CARBIDOPA\LEVODOPA
     Dosage: AM=4ML; CD=2.7ML/H DURING 16HRS; ED=1.2ML; ND=2.7ML/H DURING 8 HRS
     Route: 050
     Dates: start: 20151006, end: 20160125
  11. DUODOPA [Suspect]
     Active Substance: CARBIDOPA\LEVODOPA
     Dosage: AM=4ML; CD=2.9ML/HR DURING 16HRS; ED=1.2ML; ND=2.9ML/HR DURING
     Route: 050
     Dates: start: 20160125, end: 20160210
  12. TOVIAZ [Concomitant]
     Active Substance: FESOTERODINE FUMARATE
     Indication: PRODUCT USED FOR UNKNOWN INDICATION
  13. ASAFLOW [Concomitant]
     Active Substance: ASPIRIN
     Indication: PRODUCT USED FOR UNKNOWN INDICATION
  14. DUODOPA [Suspect]
     Active Substance: CARBIDOPA\LEVODOPA
     Dosage: DOSES CONTINUOUSLY MONITORED AND ADAPTED.
     Route: 050
     Dates: start: 20131129, end: 20150305
  15. DUODOPA [Suspect]
     Active Substance: CARBIDOPA\LEVODOPA
     Dosage: AM 0ML;CD 2.7ML/HR DURING 24HRS;ED 1.2ML
     Route: 050
     Dates: start: 20150813, end: 20151006
  16. STALEVO 50 [Concomitant]
     Indication: PRODUCT USED FOR UNKNOWN INDICATION
     Dosage: FORM STRENGTH: 50MG/12.5MG/200MG,EMERGENCY MEDICATION : 2 TIMES A DAY
  17. CYMBALTA [Concomitant]
     Active Substance: DULOXETINE HYDROCHLORIDE
     Indication: PRODUCT USED FOR UNKNOWN INDICATION
  18. DUODOPA [Suspect]
     Active Substance: CARBIDOPA\LEVODOPA
     Dosage: AM=2ML; CD=2.5ML/HR X 16HRS; ED=1.2ML; ND=2.5ML/H X 8HRS
     Route: 050
     Dates: start: 20160810, end: 20170321
  19. DUODOPA [Suspect]
     Active Substance: CARBIDOPA\LEVODOPA
     Dosage: AM=4ML; CD=2.9ML/HR X 16HRS; ED=1.2ML; ND=2.9ML/H X 8HRS
     Route: 050
     Dates: start: 20160401, end: 20160502
  20. DUODOPA [Suspect]
     Active Substance: CARBIDOPA\LEVODOPA
     Dosage: AM=3ML; CD=2.7ML/HR X 16HRS; ED=1.2ML; ND=2.7ML/H X 8HRS
     Route: 050
     Dates: start: 20160502, end: 20160810

REACTIONS (22)
  - Sedation complication [Fatal]
  - Stress [Not Recovered/Not Resolved]
  - Mobility decreased [Not Recovered/Not Resolved]
  - Malaise [Not Recovered/Not Resolved]
  - Gait inability [Unknown]
  - Stoma site pain [Unknown]
  - Coma [Unknown]
  - Condition aggravated [Unknown]
  - Nausea [Recovering/Resolving]
  - On and off phenomenon [Unknown]
  - Delirium [Unknown]
  - Delusion [Unknown]
  - Drug effect incomplete [Unknown]
  - Vertigo [Unknown]
  - Balance disorder [Unknown]
  - Device issue [Unknown]
  - Fall [Not Recovered/Not Resolved]
  - Stoma site hypergranulation [Not Recovered/Not Resolved]
  - Dizziness [Unknown]
  - Tremor [Unknown]
  - Hypotension [Not Recovered/Not Resolved]
  - Vomiting [Recovering/Resolving]

NARRATIVE: CASE EVENT DATE: 201710
